FAERS Safety Report 7247472-5 (Version None)
Quarter: 2011Q1

REPORT INFORMATION
  Report Type: 
  Country: None (occurrence: None)
  Receive Date: 20110127
  Receipt Date: 20101213
  Transmission Date: 20110831
  Serious: Yes (Life-Threatening, Hospitalization, Other)
  Sender: FDA-Public Use
  Company Number: AU-ROCHE-727865

PATIENT
  Sex: Female
  Weight: 54 kg

DRUGS (6)
  1. HERCEPTIN [Suspect]
     Indication: BREAST CANCER
     Dosage: FREQUENCY: 1 TIME. FORM: INJECTION, POWDER.
     Route: 042
     Dates: start: 20100907, end: 20100907
  2. CARBOPLATIN [Suspect]
     Indication: BREAST CANCER
     Dosage: FREQUENCY: 1 TIME.
     Route: 042
     Dates: start: 20100907, end: 20100907
  3. TAXOTERE [Suspect]
     Indication: BREAST CANCER
     Dosage: FREQUENCY: 1 TIME.
     Route: 042
     Dates: start: 20100907, end: 20100907
  4. ZOFRAN [Suspect]
     Indication: NAUSEA
     Dosage: FREQUENCY: ONCE
     Route: 042
     Dates: start: 20100907, end: 20100907
  5. ZOFRAN [Suspect]
     Route: 048
     Dates: start: 20100907, end: 20100909
  6. DEXAMETHASONE [Suspect]
     Route: 048
     Dates: start: 20100906, end: 20100908

REACTIONS (9)
  - ABDOMINAL PAIN [None]
  - FEBRILE NEUTROPENIA [None]
  - NEUTROPENIC COLITIS [None]
  - ABDOMINAL RIGIDITY [None]
  - INTESTINAL MASS [None]
  - ABDOMINAL DISTENSION [None]
  - HYPOTENSION [None]
  - DIARRHOEA [None]
  - TACHYCARDIA [None]
